FAERS Safety Report 10368673 (Version 1)
Quarter: 2014Q3

REPORT INFORMATION
  Report Type: Report from Study
  Country: DE (occurrence: CO)
  Receive Date: 20140807
  Receipt Date: 20140807
  Transmission Date: 20150326
  Serious: Yes (Hospitalization)
  Sender: FDA-Public Use
  Company Number: DE-ACTELION-A-US2014-103363

PATIENT
  Age: 28 Year
  Sex: Female

DRUGS (1)
  1. VENTAVIS [Suspect]
     Active Substance: ILOPROST
     Indication: PULMONARY HYPERTENSION
     Dosage: 10 MCG, Q4HR
     Route: 055
     Dates: start: 20080109

REACTIONS (3)
  - Dyspnoea [Unknown]
  - Nasal congestion [Unknown]
  - Cough [Unknown]

NARRATIVE: CASE EVENT DATE: 20140729
